FAERS Safety Report 7065629-3 (Version None)
Quarter: 2010Q4

REPORT INFORMATION
  Report Type: 
  Country: None (occurrence: None)
  Receive Date: 20101022
  Receipt Date: 20101022
  Transmission Date: 20110411
  Serious: Yes (Other)
  Sender: FDA-Public Use
  Company Number: None

PATIENT
  Age: 54 Year
  Sex: Male
  Weight: 77.1115 kg

DRUGS (1)
  1. OXALIPLATIN [Suspect]
     Indication: COLON CANCER METASTATIC
     Dosage: 175 MG - Q 2 WKS IV
     Route: 042
     Dates: start: 20100607, end: 20101018

REACTIONS (3)
  - INFUSION RELATED REACTION [None]
  - PRURITUS [None]
  - THROAT IRRITATION [None]
